FAERS Safety Report 25235458 (Version 5)
Quarter: 2025Q3

REPORT INFORMATION
  Report Type: Report from Study
  Country: JP (occurrence: JP)
  Receive Date: 20250424
  Receipt Date: 20250829
  Transmission Date: 20251020
  Serious: Yes (Life-Threatening, Hospitalization)
  Sender: PFIZER
  Company Number: JP-PFIZER INC-PV202500047330

PATIENT
  Age: 65 Year
  Sex: Female
  Weight: 42.5 kg

DRUGS (20)
  1. ELRANATAMAB [Suspect]
     Active Substance: ELRANATAMAB
     Indication: Plasma cell myeloma refractory
     Dosage: 12 MG, 1X/DAY
     Route: 058
     Dates: start: 20250115, end: 20250115
  2. ELRANATAMAB [Suspect]
     Active Substance: ELRANATAMAB
     Dosage: 32 MG, 1X/DAY
     Route: 058
     Dates: start: 20250120, end: 20250120
  3. ELRANATAMAB [Suspect]
     Active Substance: ELRANATAMAB
     Dosage: 76 MG, 1X/DAY
     Route: 058
     Dates: start: 20250124, end: 20250124
  4. ELRANATAMAB [Suspect]
     Active Substance: ELRANATAMAB
     Dosage: 76 MG, 1X/DAY
     Route: 058
     Dates: start: 20250307, end: 20250307
  5. ELRANATAMAB [Suspect]
     Active Substance: ELRANATAMAB
     Dosage: 76 MG, 1X/DAY
     Route: 058
     Dates: start: 20250328, end: 20250328
  6. ELRANATAMAB [Suspect]
     Active Substance: ELRANATAMAB
     Dosage: 44 MG, WEEKLY
     Route: 058
     Dates: start: 20250509, end: 20250516
  7. ELRANATAMAB [Suspect]
     Active Substance: ELRANATAMAB
     Dosage: 44 MG, 1X/DAY
     Route: 058
     Dates: start: 20250613, end: 20250613
  8. ELRANATAMAB [Suspect]
     Active Substance: ELRANATAMAB
     Dosage: 44 MG, 1X/DAY
     Route: 058
     Dates: start: 20250704, end: 20250704
  9. ELRANATAMAB [Suspect]
     Active Substance: ELRANATAMAB
     Dosage: 44 MG, WEEKLY
     Route: 058
     Dates: start: 20250808, end: 20250815
  10. ZOVIRAX [Concomitant]
     Active Substance: ACYCLOVIR
     Dosage: 1 DF, 1X/DAY AFTER BREAKFAST
  11. FAMOTIDINE [Concomitant]
     Active Substance: FAMOTIDINE
     Dosage: 1 DF, 1X/DAY AFTER LUNCH
  12. CALCIUM CARBONATE\CHOLECALCIFEROL\MAGNESIUM CARBONATE [Concomitant]
     Active Substance: CALCIUM CARBONATE\CHOLECALCIFEROL\MAGNESIUM CARBONATE
     Dosage: 1 DF, 1X/DAY AFTER BREAKFAST
  13. SULFAMETHOXAZOLE\TRIMETHOPRIM [Concomitant]
     Active Substance: SULFAMETHOXAZOLE\TRIMETHOPRIM
     Dosage: 0.5 G, 1X/DAY AFTER DINNER ON MONDAY, WEDNESDAY AND FRIDAY
  14. AMLODIPINE [Concomitant]
     Active Substance: AMLODIPINE BESYLATE
     Dosage: 1 DF, 1X/DAY AFTER BREAKFAST
  15. TASIGNA [Concomitant]
     Active Substance: NILOTINIB
     Dosage: 1 DF, 2X/DAY AT 10:00 AND 22:00
  16. SITAFLOXACIN SAWAI [Concomitant]
     Dosage: 2 DF, 1X/DAY AFTER DINNER
  17. MIYA-BM [Concomitant]
     Active Substance: CLOSTRIDIUM BUTYRICUM SPORES STRAIN M-55
     Dosage: 1 DF, 3X/DAY AFTER BREAKFAST, LUNCH AND DINNER
  18. CARBOCYSTEINE [Concomitant]
     Active Substance: CARBOCYSTEINE
     Dosage: 1 DF, 3X/DAY AFTER BREAKFAST, LUNCH AND DINNER
  19. EPRAZINONE [Concomitant]
     Active Substance: EPRAZINONE
     Dosage: 1 DF, 3X/DAY AFTER BREAKFAST, LUNCH AND DINNER
  20. HEPARINOID NICHIIKO [Concomitant]

REACTIONS (3)
  - Neutrophil count decreased [Recovered/Resolved]
  - COVID-19 pneumonia [Recovered/Resolved]
  - Enterocolitis [Recovered/Resolved]

NARRATIVE: CASE EVENT DATE: 20250127
